FAERS Safety Report 7983429-4 (Version None)
Quarter: 2011Q4

REPORT INFORMATION
  Report Type: 
  Country: None (occurrence: None)
  Receive Date: 20111215
  Receipt Date: 20111207
  Transmission Date: 20120403
  Serious: Yes (Hospitalization)
  Sender: FDA-Public Use
  Company Number: US-ABBOTT-11P-163-0882007-00

PATIENT
  Age: 63 Year
  Sex: Female

DRUGS (4)
  1. DILAUDID [Concomitant]
     Indication: ARTHRALGIA
     Dosage: UP TO THREE TIMES DAILY AS NEEDED
  2. COLCHICINE [Concomitant]
     Indication: PRODUCT USED FOR UNKNOWN INDICATION
  3. PLAQUENIL [Concomitant]
     Indication: PRODUCT USED FOR UNKNOWN INDICATION
  4. HUMIRA [Suspect]
     Indication: RHEUMATOID ARTHRITIS
     Dates: start: 20110831, end: 20111123

REACTIONS (6)
  - PAIN [None]
  - MENTAL STATUS CHANGES [None]
  - HYPERCALCAEMIA [None]
  - FATIGUE [None]
  - RED BLOOD CELL SEDIMENTATION RATE INCREASED [None]
  - CUTANEOUS SARCOIDOSIS [None]
